FAERS Safety Report 12156386 (Version 2)
Quarter: 2016Q2

REPORT INFORMATION
  Report Type: Spontaneous
  Country: US (occurrence: US)
  Receive Date: 20160307
  Receipt Date: 20160428
  Transmission Date: 20160815
  Serious: No
  Sender: FDA-Public Use
  Company Number: US-ASTRAZENECA-2016SE16590

PATIENT
  Age: 1040 Month
  Sex: Female
  Weight: 45.4 kg

DRUGS (6)
  1. LYNPARZA [Suspect]
     Active Substance: OLAPARIB
     Indication: OVARIAN CANCER
     Route: 048
     Dates: start: 201512
  2. LYNPARZA [Suspect]
     Active Substance: OLAPARIB
     Indication: OVARIAN CANCER
     Route: 048
     Dates: start: 201603
  3. LEVOTHROID [Concomitant]
     Active Substance: LEVOTHYROXINE SODIUM
     Indication: THYROID DISORDER
     Route: 048
  4. CALCIUM [Concomitant]
     Active Substance: CALCIUM
     Dosage: DAILY
     Route: 048
  5. LYNPARZA [Suspect]
     Active Substance: OLAPARIB
     Indication: OVARIAN CANCER
     Route: 048
     Dates: start: 20151120, end: 201512
  6. TRAMADOL. [Concomitant]
     Active Substance: TRAMADOL
     Indication: BACK PAIN
     Route: 048

REACTIONS (14)
  - Drug intolerance [Unknown]
  - Chest pain [Unknown]
  - Off label use [Unknown]
  - Hypokinesia [Unknown]
  - Bed rest [Unknown]
  - Fatigue [Unknown]
  - Pruritus [Unknown]
  - Insomnia [Unknown]
  - Abdominal discomfort [Unknown]
  - Body height decreased [Unknown]
  - Pruritus [Unknown]
  - Memory impairment [Unknown]
  - Dysstasia [Unknown]
  - Asthenia [Not Recovered/Not Resolved]

NARRATIVE: CASE EVENT DATE: 201512
